FAERS Safety Report 17361463 (Version 1)
Quarter: 2020Q1

REPORT INFORMATION
  Report Type: Spontaneous
  Country: US (occurrence: US)
  Receive Date: 20200203
  Receipt Date: 20200203
  Transmission Date: 20200409
  Serious: No
  Sender: FDA-Public Use
  Company Number: US-PFIZER INC-2020040194

PATIENT
  Age: 80 Year
  Sex: Female
  Weight: 59 kg

DRUGS (4)
  1. JAKAFI [Suspect]
     Active Substance: RUXOLITINIB
     Indication: MYELOFIBROSIS
     Dosage: 25 MG, 1X/DAY
     Route: 048
     Dates: start: 201502
  2. GABAPENTIN. [Suspect]
     Active Substance: GABAPENTIN
     Dosage: UNK
  3. JAKAFI [Suspect]
     Active Substance: RUXOLITINIB
     Dosage: 25 MG, 1X/DAY
     Dates: start: 201502
  4. JAKAFI [Suspect]
     Active Substance: RUXOLITINIB
     Dosage: 25 MG, 1X/DAY
     Dates: start: 20150215

REACTIONS (13)
  - Pain [Not Recovered/Not Resolved]
  - Insomnia [Unknown]
  - Cough [Not Recovered/Not Resolved]
  - Asthenia [Not Recovered/Not Resolved]
  - Emotional disorder [Unknown]
  - Herpes zoster [Not Recovered/Not Resolved]
  - Fall [Unknown]
  - Nausea [Unknown]
  - Fatigue [Unknown]
  - Balance disorder [Unknown]
  - Feeding disorder [Unknown]
  - Dizziness [Unknown]
  - Face injury [Unknown]
